FAERS Safety Report 14174414 (Version 1)
Quarter: 2017Q4

REPORT INFORMATION
  Report Type: Spontaneous
  Country: US (occurrence: US)
  Receive Date: 20171109
  Receipt Date: 20171109
  Transmission Date: 20180321
  Serious: No
  Sender: FDA-Public Use
  Company Number: US-PERRIGO-17US002512

PATIENT
  Sex: Female

DRUGS (4)
  1. FAMOTIDINE. [Suspect]
     Active Substance: FAMOTIDINE
     Dosage: 1/2 TABLET, SINGLE
     Route: 048
     Dates: start: 20170315, end: 20170315
  2. FAMOTIDINE. [Suspect]
     Active Substance: FAMOTIDINE
     Indication: DYSPEPSIA
     Dosage: 20 MG, QD TO BID, PRN
     Route: 048
     Dates: end: 2016
  3. FAMOTIDINE. [Suspect]
     Active Substance: FAMOTIDINE
     Dosage: 20 MG, QD TO BID
     Route: 048
     Dates: start: 2016, end: 20170314
  4. HYDROXYUREA. [Concomitant]
     Active Substance: HYDROXYUREA
     Indication: LEUKAEMIA
     Dosage: UNK
     Route: 048
     Dates: start: 201607

REACTIONS (6)
  - Red blood cell abnormality [Not Recovered/Not Resolved]
  - Incorrect drug administration duration [Recovered/Resolved]
  - Platelet disorder [Not Recovered/Not Resolved]
  - White blood cell count abnormal [Not Recovered/Not Resolved]
  - Incorrect dose administered [Recovered/Resolved]
  - Wrong technique in product usage process [Recovered/Resolved]

NARRATIVE: CASE EVENT DATE: 2016
